FAERS Safety Report 7421430-X (Version None)
Quarter: 2011Q2

REPORT INFORMATION
  Report Type: 
  Country: None (occurrence: None)
  Receive Date: 20110418
  Receipt Date: 20110407
  Transmission Date: 20111010
  Serious: Yes (Other)
  Sender: FDA-Public Use
  Company Number: US-JNJFOC-20110300394

PATIENT
  Age: 60 Year
  Sex: Female
  Weight: 71.22 kg

DRUGS (19)
  1. EXTRA STRENGTH TYLENOL [Suspect]
     Indication: MUSCULOSKELETAL PAIN
     Route: 048
  2. NEXIUM [Concomitant]
     Indication: GASTROOESOPHAGEAL REFLUX DISEASE
     Route: 048
  3. ALDACTONE [Concomitant]
     Indication: URTICARIA
     Route: 048
  4. XOPENEX [Concomitant]
     Indication: ASTHMA
     Dosage: 2 PUFFS
     Route: 048
  5. MEPERIDINE [Concomitant]
     Indication: BLOOD PRESSURE
     Route: 048
  6. LEVOTHYROXINE SODIUM [Concomitant]
     Indication: THYROID DISORDER
     Route: 048
  7. PROMETHAZINE [Concomitant]
     Indication: NAUSEA
     Route: 048
  8. NAPROXEN [Concomitant]
     Indication: MIGRAINE
     Route: 048
  9. EXTRA STRENGTH TYLENOL [Suspect]
     Route: 048
  10. POTASSIUM [Concomitant]
     Indication: HYPOKALAEMIA
     Route: 048
  11. TRIAMTERENE [Concomitant]
     Indication: DIURETIC THERAPY
     Route: 048
  12. TRAMADOL [Concomitant]
     Indication: MIGRAINE
     Route: 048
  13. FLECAINIDE ACETATE [Concomitant]
     Indication: PROPHYLAXIS
     Route: 048
  14. AMLODIPINE [Concomitant]
     Indication: BLOOD PRESSURE
     Route: 048
  15. PLAVIX [Concomitant]
     Indication: ANTICOAGULANT THERAPY
     Route: 048
  16. TOPAMAX [Concomitant]
     Indication: MIGRAINE
     Route: 048
  17. NITROGLYCERIN [Concomitant]
     Indication: CARDIAC DISORDER
     Dosage: 1  OR 2
     Route: 048
  18. SIMVASTATIN [Concomitant]
     Indication: BLOOD CHOLESTEROL
     Route: 048
  19. NORVASC [Concomitant]
     Indication: BLOOD PRESSURE
     Route: 048

REACTIONS (1)
  - RASH [None]
